FAERS Safety Report 22220262 (Version 4)
Quarter: 2023Q2

REPORT INFORMATION
  Report Type: Spontaneous
  Country: GB (occurrence: GB)
  Receive Date: 20230417
  Receipt Date: 20230515
  Transmission Date: 20230722
  Serious: Yes (Death, Life-Threatening, Hospitalization, Other)
  Sender: FDA-Public Use
  Company Number: GB-LEO Pharma-351147

PATIENT
  Age: 68 Year
  Sex: Male

DRUGS (1)
  1. BRODALUMAB [Suspect]
     Active Substance: BRODALUMAB
     Indication: Psoriasis
     Dosage: 120
     Route: 065
     Dates: start: 20210501

REACTIONS (2)
  - Cardiac valve abscess [Fatal]
  - Subacute endocarditis [Not Recovered/Not Resolved]

NARRATIVE: CASE EVENT DATE: 20230205
